FAERS Safety Report 8501032-4 (Version None)
Quarter: 2012Q3

REPORT INFORMATION
  Report Type: 
  Country: None (occurrence: None)
  Receive Date: 20120710
  Receipt Date: 20120710
  Transmission Date: 20120928
  Serious: Yes (Other)
  Sender: FDA-Public Use
  Company Number: DK-BAYER-2012-068233

PATIENT
  Age: 35 Year
  Sex: Female

DRUGS (2)
  1. MIRENA [Suspect]
     Indication: MENSTRUAL CYCLE MANAGEMENT
     Dosage: UNK
     Dates: start: 20120127, end: 20120224
  2. MIRENA [Suspect]
     Indication: CONTRACEPTION

REACTIONS (2)
  - ABDOMINAL INFECTION [None]
  - PAIN [None]
